FAERS Safety Report 24351257 (Version 1)
Quarter: 2024Q3

REPORT INFORMATION
  Report Type: Report from Study
  Country: AT (occurrence: AT)
  Receive Date: 20240923
  Receipt Date: 20240923
  Transmission Date: 20241017
  Serious: No
  Sender: ROCHE
  Company Number: AT-ROCHE-2723956

PATIENT
  Age: 50 Year
  Sex: Female
  Weight: 55.0 kg

DRUGS (21)
  1. HERCEPTIN [Suspect]
     Active Substance: TRASTUZUMAB
     Indication: HER2 positive breast cancer
     Route: 042
     Dates: start: 20181113, end: 20190918
  2. HERCEPTIN [Suspect]
     Active Substance: TRASTUZUMAB
     Route: 042
     Dates: start: 20190918, end: 20210406
  3. PERJETA [Suspect]
     Active Substance: PERTUZUMAB
     Indication: HER2 positive breast cancer
     Route: 042
     Dates: start: 20181113, end: 20190918
  4. PERJETA [Suspect]
     Active Substance: PERTUZUMAB
     Route: 042
     Dates: start: 20190918, end: 20210406
  5. ABRAXANE [Suspect]
     Active Substance: PACLITAXEL
     Indication: HER2 positive breast cancer
     Route: 042
     Dates: start: 20181205, end: 20190515
  6. AROMASIN [Suspect]
     Active Substance: EXEMESTANE
     Indication: HER2 positive breast cancer
     Route: 048
     Dates: start: 20181108
  7. PANTOPRAZOLE SODIUM [Concomitant]
     Active Substance: PANTOPRAZOLE SODIUM
     Route: 048
     Dates: start: 20181108
  8. MYCOSTATIN [Concomitant]
     Active Substance: NYSTATIN
     Indication: Stomatitis
     Dosage: ONGOING = NOT CHECKED
     Route: 061
     Dates: start: 20181219, end: 20190104
  9. RETINOL [Concomitant]
     Active Substance: RETINOL
     Route: 048
     Dates: start: 20181108
  10. DIAZEPAM [Concomitant]
     Active Substance: DIAZEPAM
     Route: 048
     Dates: start: 20181108
  11. PREGABALIN [Concomitant]
     Active Substance: PREGABALIN
     Route: 048
     Dates: end: 20211004
  12. SUCRALAN [Concomitant]
     Indication: Stomatitis
     Route: 048
     Dates: start: 20181219, end: 20190104
  13. APREPITANT [Concomitant]
     Active Substance: APREPITANT
  14. ONDANSETRON [Concomitant]
     Active Substance: ONDANSETRON
  15. DEXAMETHASONE [Concomitant]
     Active Substance: DEXAMETHASONE
  16. PASPERTIN [Concomitant]
  17. LEVOTHYROXINE SODIUM [Concomitant]
     Active Substance: LEVOTHYROXINE SODIUM
  18. NOVALGIN (METAMIZOLE SODIUM) [Concomitant]
     Active Substance: METAMIZOLE SODIUM
  19. ENOXAPARIN SODIUM [Concomitant]
     Active Substance: ENOXAPARIN SODIUM
  20. MAGNESIUM [Concomitant]
     Active Substance: MAGNESIUM
  21. XGEVA [Concomitant]
     Active Substance: DENOSUMAB

REACTIONS (1)
  - Dysaesthesia [Recovered/Resolved]

NARRATIVE: CASE EVENT DATE: 20190101
